FAERS Safety Report 4519403-X (Version None)
Quarter: 2004Q4

REPORT INFORMATION
  Report Type: 
  Country: None (occurrence: None)
  Receive Date: 20041202
  Receipt Date: 20041117
  Transmission Date: 20050328
  Serious: Yes (Hospitalization)
  Sender: FDA-Public Use
  Company Number: 2004VX000912

PATIENT
  Age: 68 Year
  Sex: Male

DRUGS (3)
  1. FLUOROURACIL [Suspect]
     Indication: HYPOPHARYNGEAL CANCER
     Dosage: 750 MG; INTRAVENOUS
     Route: 042
  2. CISPLATIN [Suspect]
     Dosage: 98 MG; INTRAVENOUS
     Route: 042
  3. TAXOTERE [Suspect]
     Dosage: 75 MG; INTRAVENOUS
     Route: 042

REACTIONS (3)
  - ELECTROCARDIOGRAM ABNORMAL [None]
  - HYPOKALAEMIA [None]
  - HYPONATRAEMIA [None]
